FAERS Safety Report 11651002 (Version 1)
Quarter: 2015Q4

REPORT INFORMATION
  Report Type: Spontaneous
  Country: US (occurrence: US)
  Receive Date: 20151021
  Receipt Date: 20151021
  Transmission Date: 20160304
  Serious: No
  Sender: FDA-Public Use
  Company Number: GXBR2014US002453

PATIENT
  Age: 58 Year
  Sex: Female
  Weight: 89.34 kg

DRUGS (3)
  1. METHYLPREDNISOLONE TABLETS USP [Suspect]
     Active Substance: METHYLPREDNISOLONE
     Indication: TRIGEMINAL NERVE DISORDER
     Dosage: 4 MG, UNK
     Route: 048
     Dates: start: 20141113
  2. TORADOL [Concomitant]
     Active Substance: KETOROLAC TROMETHAMINE
     Indication: TRIGEMINAL NERVE DISORDER
     Dosage: 25 UNK, UNK
     Dates: start: 20141113
  3. SOLU-MEDROL [Concomitant]
     Active Substance: METHYLPREDNISOLONE SODIUM SUCCINATE
     Indication: TRIGEMINAL NERVE DISORDER
     Dosage: 125 MG, UNK
     Dates: start: 20141113

REACTIONS (6)
  - Diarrhoea [Not Recovered/Not Resolved]
  - Abdominal pain [Not Recovered/Not Resolved]
  - Coeliac disease [Not Recovered/Not Resolved]
  - Abdominal discomfort [Not Recovered/Not Resolved]
  - Abnormal faeces [Not Recovered/Not Resolved]
  - Condition aggravated [Not Recovered/Not Resolved]

NARRATIVE: CASE EVENT DATE: 20141114
